FAERS Safety Report 9655609 (Version 2)
Quarter: 2013Q4

REPORT INFORMATION
  Report Type: Spontaneous
  Country: US (occurrence: US)
  Receive Date: 20131030
  Receipt Date: 20131107
  Transmission Date: 20140711
  Serious: Yes (Other)
  Sender: FDA-Public Use
  Company Number: US-AMGEN-USASP2013075955

PATIENT
  Age: 71 Year
  Sex: Female
  Weight: 74.83 kg

DRUGS (6)
  1. ENBREL [Suspect]
     Indication: PSORIASIS
     Dosage: 50 MG, QWK
     Route: 058
     Dates: start: 20041019
  2. FLUTICASONE [Concomitant]
     Dosage: 50 MUG, UNK
  3. MELOXICAM [Concomitant]
     Dosage: 7.5 QD PRN
     Route: 048
  4. METFORMIN [Concomitant]
     Dosage: 500 UNK, QD
     Route: 048
  5. SIMVASTATIN [Concomitant]
     Dosage: 10 MG, QD
     Route: 048
  6. VOLTAREN                           /00372301/ [Concomitant]
     Dosage: 1 %, AS NECESSARY
     Route: 061

REACTIONS (5)
  - Intervertebral disc disorder [Unknown]
  - Spinal disorder [Not Recovered/Not Resolved]
  - Oropharyngeal pain [Recovered/Resolved]
  - Influenza [Unknown]
  - Nasopharyngitis [Recovered/Resolved]
